FAERS Safety Report 21055537 (Version 1)
Quarter: 2022Q3

REPORT INFORMATION
  Report Type: Spontaneous
  Country: IL (occurrence: IL)
  Receive Date: 20220708
  Receipt Date: 20220708
  Transmission Date: 20221027
  Serious: No
  Sender: FDA-Public Use
  Company Number: IL-TOLMAR, INC.-22IL035200

PATIENT
  Sex: Male

DRUGS (1)
  1. ELIGARD [Suspect]
     Active Substance: LEUPROLIDE ACETATE
     Indication: Product used for unknown indication
     Dosage: 45 MILLIGRAM
     Dates: start: 202206

REACTIONS (2)
  - Intercepted product preparation error [Unknown]
  - Device issue [Unknown]

NARRATIVE: CASE EVENT DATE: 20220601
